FAERS Safety Report 6888047-7 (Version None)
Quarter: 2010Q3

REPORT INFORMATION
  Report Type: 
  Country: None (occurrence: None)
  Receive Date: 20100730
  Receipt Date: 20100624
  Transmission Date: 20110219
  Serious: Yes (Life-Threatening, Other)
  Sender: FDA-Public Use
  Company Number: US-BAXTER-2010BH003543

PATIENT
  Age: 59 Year
  Sex: Male
  Weight: 88 kg

DRUGS (16)
  1. HEPARIN SODIUM [Suspect]
     Indication: CORONARY ARTERIAL STENT INSERTION
     Route: 042
     Dates: start: 20080512, end: 20080501
  2. HEPARIN SODIUM [Suspect]
     Indication: ANGIOPLASTY
     Route: 042
     Dates: start: 20080512, end: 20080501
  3. FENTANYL CITRATE [Suspect]
     Indication: ANGIOPLASTY
     Route: 042
     Dates: start: 20080512
  4. PLAVIX [Suspect]
     Indication: ANGIOPLASTY
     Route: 042
     Dates: start: 20080512, end: 20080512
  5. INTEGRILIN [Suspect]
     Indication: ANGIOPLASTY
     Route: 042
     Dates: start: 20080512, end: 20080512
  6. MIDAZOLAM HCL [Suspect]
     Indication: ANGIOPLASTY
     Route: 042
     Dates: start: 20080512, end: 20080512
  7. ASPIRIN [Concomitant]
     Indication: PRODUCT USED FOR UNKNOWN INDICATION
     Route: 065
  8. HYDROCHLOROTHIAZIDE [Concomitant]
     Indication: PRODUCT USED FOR UNKNOWN INDICATION
     Route: 065
  9. SIMVASTATIN [Concomitant]
     Indication: PRODUCT USED FOR UNKNOWN INDICATION
     Route: 065
  10. NITROGLYCERIN [Concomitant]
     Indication: PRODUCT USED FOR UNKNOWN INDICATION
     Route: 065
  11. METOPROLOL TARTRATE [Concomitant]
     Indication: PRODUCT USED FOR UNKNOWN INDICATION
     Route: 065
  12. LOVENOX [Concomitant]
     Indication: PRODUCT USED FOR UNKNOWN INDICATION
     Route: 065
  13. LISINOPRIL [Concomitant]
     Indication: PRODUCT USED FOR UNKNOWN INDICATION
     Route: 065
  14. ACETAMINOPHEN [Concomitant]
     Indication: PRODUCT USED FOR UNKNOWN INDICATION
     Route: 065
  15. MORPHINE [Concomitant]
     Indication: PRODUCT USED FOR UNKNOWN INDICATION
     Route: 065
  16. ONDANSETRON [Concomitant]
     Indication: PRODUCT USED FOR UNKNOWN INDICATION
     Route: 065

REACTIONS (14)
  - BACK PAIN [None]
  - CARDIAC ARREST [None]
  - CEREBELLAR HAEMORRHAGE [None]
  - DEEP VEIN THROMBOSIS [None]
  - DYSPNOEA [None]
  - HEADACHE [None]
  - HYPERSENSITIVITY [None]
  - INTRACRANIAL ANEURYSM [None]
  - MENTAL STATUS CHANGES [None]
  - MOBILITY DECREASED [None]
  - NAUSEA [None]
  - PHARYNGEAL OEDEMA [None]
  - SINUS BRADYCARDIA [None]
  - SWOLLEN TONGUE [None]
